FAERS Safety Report 24628060 (Version 2)
Quarter: 2025Q3

REPORT INFORMATION
  Report Type: Spontaneous
  Country: US (occurrence: US)
  Receive Date: 20241117
  Receipt Date: 20250809
  Transmission Date: 20251021
  Serious: Yes (Other)
  Sender: ALEXION PHARMACEUTICALS
  Company Number: US-AstraZeneca-CH-00718401A

PATIENT
  Sex: Male

DRUGS (1)
  1. FARXIGA [Suspect]
     Active Substance: DAPAGLIFLOZIN PROPANEDIOL
     Indication: Renal disorder

REACTIONS (7)
  - Renal injury [Unknown]
  - Penile pain [Unknown]
  - Urinary tract infection [Unknown]
  - Perineal rash [Unknown]
  - Back pain [Unknown]
  - Product use issue [Unknown]
  - Intentional product misuse [Unknown]
